APPROVED DRUG PRODUCT: FOSINOPRIL SODIUM AND HYDROCHLOROTHIAZIDE
Active Ingredient: FOSINOPRIL SODIUM; HYDROCHLOROTHIAZIDE
Strength: 10MG;12.5MG
Dosage Form/Route: TABLET;ORAL
Application: A077705 | Product #001
Applicant: MYLAN PHARMACEUTICALS INC
Approved: Aug 14, 2006 | RLD: No | RS: No | Type: DISCN